FAERS Safety Report 9113201 (Version 1)
Quarter: 2013Q1

REPORT INFORMATION
  Report Type: Spontaneous
  Country: US (occurrence: US)
  Receive Date: 20130211
  Receipt Date: 20130211
  Transmission Date: 20140127
  Serious: Yes (Other)
  Sender: FDA-Public Use
  Company Number: US-VERTEX PHARMACEUTICALS INC.-2013-001774

PATIENT
  Age: 31 None
  Sex: Female
  Weight: 59 kg

DRUGS (4)
  1. INCIVEK [Suspect]
     Indication: HEPATITIS C
     Dosage: 750 MG, TID
     Route: 048
     Dates: start: 20121109, end: 20130201
  2. RIBAVIRIN [Suspect]
     Indication: HEPATITIS C
     Dosage: 600 MG, BID
     Route: 048
     Dates: start: 20121109, end: 2012
  3. RIBAVIRIN [Suspect]
     Dosage: 400MG INAM AND 200MG IN PM
     Route: 048
     Dates: start: 201301
  4. PEGINTRON [Suspect]
     Indication: HEPATITIS C
     Dosage: WEEKLY
     Route: 058
     Dates: start: 20121109

REACTIONS (7)
  - Anaemia [Recovered/Resolved]
  - Vision blurred [Not Recovered/Not Resolved]
  - Blepharitis [Recovered/Resolved]
  - Asthenopia [Not Recovered/Not Resolved]
  - Hunger [Not Recovered/Not Resolved]
  - Lethargy [Not Recovered/Not Resolved]
  - Pruritus [Not Recovered/Not Resolved]
